FAERS Safety Report 11687803 (Version 2)
Quarter: 2015Q4

REPORT INFORMATION
  Report Type: Spontaneous
  Country: JP (occurrence: JP)
  Receive Date: 20151030
  Receipt Date: 20151120
  Transmission Date: 20160304
  Serious: Yes (Other)
  Sender: FDA-Public Use
  Company Number: JP-JNJFOC-20151023287

PATIENT
  Age: 48 Year
  Sex: Male

DRUGS (3)
  1. LYRICA [Suspect]
     Active Substance: PREGABALIN
     Indication: PRODUCT USED FOR UNKNOWN INDICATION
     Dosage: ONCE PER ONE DAY
     Route: 048
     Dates: start: 2015
  2. CELECOX [Concomitant]
     Active Substance: CELECOXIB
     Indication: PRODUCT USED FOR UNKNOWN INDICATION
     Dosage: ONCE A DAY
     Route: 048
  3. TRAMCET [Suspect]
     Active Substance: ACETAMINOPHEN\TRAMADOL
     Indication: PAIN
     Dosage: ONCE PER DAY
     Route: 048
     Dates: start: 20150801

REACTIONS (1)
  - Granulocytopenia [Recovering/Resolving]

NARRATIVE: CASE EVENT DATE: 20151026
